FAERS Safety Report 4939473-4 (Version None)
Quarter: 2006Q1

REPORT INFORMATION
  Report Type: 
  Country: None (occurrence: None)
  Receive Date: 20060310
  Receipt Date: 20060301
  Transmission Date: 20060701
  Serious: Yes (Other)
  Sender: FDA-Public Use
  Company Number: US-JNJFOC-20060200131

PATIENT
  Sex: Female
  Weight: 117.48 kg

DRUGS (14)
  1. REMICADE [Suspect]
     Route: 042
  2. REMICADE [Suspect]
     Indication: RHEUMATOID ARTHRITIS
     Route: 042
  3. METHOTREXATE [Concomitant]
  4. PREVACID [Concomitant]
  5. PLAQUENIL [Concomitant]
  6. BEXTRA [Concomitant]
  7. ALEVE [Concomitant]
  8. FOLIC ACID [Concomitant]
  9. LODINE [Concomitant]
     Dosage: DAILY OR TWICE DAILY
  10. PREDNISONE [Concomitant]
  11. VICODIN [Concomitant]
  12. VICODIN [Concomitant]
  13. TRIAMTERENE AND HYDROCHLOROTHIAZIDE [Concomitant]
  14. TRIAMTERENE AND HYDROCHLOROTHIAZIDE [Concomitant]
     Indication: DIURETIC THERAPY

REACTIONS (1)
  - LUNG ADENOCARCINOMA [None]
